FAERS Safety Report 7622835-4 (Version None)
Quarter: 2011Q3

REPORT INFORMATION
  Report Type: 
  Country: None (occurrence: None)
  Receive Date: 20110720
  Receipt Date: 20110706
  Transmission Date: 20111222
  Serious: Yes (Life-Threatening)
  Sender: FDA-Public Use
  Company Number: JP-MYLANLABS-2011S1013079

PATIENT
  Age: 76 Year
  Sex: Female

DRUGS (12)
  1. DEXAMETHASONE SODIUM PHOSPHATE [Concomitant]
     Indication: PREMEDICATION
     Route: 041
     Dates: start: 20110530, end: 20110530
  2. DECADRON [Concomitant]
     Indication: PREMEDICATION
     Route: 048
     Dates: start: 20110530, end: 20110601
  3. PACLITAXEL [Suspect]
     Indication: OVARIAN CANCER
     Route: 041
     Dates: start: 20110530, end: 20110530
  4. ADENOSINE [Concomitant]
     Indication: DIZZINESS
     Route: 048
  5. METHYCOBAL [Concomitant]
     Indication: DIZZINESS
     Route: 048
  6. RALOXIFENE HCL [Concomitant]
     Indication: OSTEOPOROSIS
     Route: 048
  7. EBRANTIL /00631801/ [Concomitant]
     Indication: HYPERTENSION
     Route: 048
  8. CARBOPLATIN [Suspect]
     Indication: OVARIAN CANCER
     Route: 041
     Dates: start: 20110530, end: 20110530
  9. RESTAMIN #1 [Concomitant]
     Indication: PREMEDICATION
     Route: 048
     Dates: start: 20110530, end: 20110530
  10. GRANISETRON [Concomitant]
     Indication: PREMEDICATION
     Route: 048
     Dates: start: 20110530, end: 20110530
  11. LANSOPRAZOLE [Concomitant]
     Indication: GASTRITIS
     Route: 048
  12. FAMOTIDINE [Concomitant]
     Indication: PREMEDICATION
     Route: 041
     Dates: start: 20110530, end: 20110530

REACTIONS (3)
  - INAPPROPRIATE ANTIDIURETIC HORMONE SECRETION [None]
  - HYPONATRAEMIA [None]
  - HYPOCHLORAEMIA [None]
